FAERS Safety Report 7122655-3 (Version None)
Quarter: 2010Q4

REPORT INFORMATION
  Report Type: 
  Country: None (occurrence: None)
  Receive Date: 20101124
  Receipt Date: 20101122
  Transmission Date: 20110411
  Serious: Yes (Life-Threatening, Other)
  Sender: FDA-Public Use
  Company Number: US-B.I. PHARMACEUTICALS,INC./RIDGEFIELD-2010-BP-11605BP

PATIENT
  Sex: Female

DRUGS (2)
  1. IPRATROPIUM BROMIDE [Suspect]
     Indication: ASTHMA
     Dates: start: 20101013, end: 20101013
  2. MEDICATION NOT OTHERWISE SPECIFIED [Concomitant]
     Indication: ASTHMA

REACTIONS (1)
  - ANAPHYLACTIC REACTION [None]
